FAERS Safety Report 18511576 (Version 3)
Quarter: 2020Q4

REPORT INFORMATION
  Report Type: Spontaneous
  Country: DE (occurrence: DE)
  Receive Date: 20201117
  Receipt Date: 20201214
  Transmission Date: 20210114
  Serious: Yes (Hospitalization, Other)
  Sender: FDA-Public Use
  Company Number: DE-OTSUKA-2020_028003

PATIENT
  Age: 44 Year
  Sex: Male

DRUGS (8)
  1. JINARC [Suspect]
     Active Substance: TOLVAPTAN
     Dosage: 30 MG, QD
     Route: 065
     Dates: start: 20170408, end: 20201109
  2. JINARC [Suspect]
     Active Substance: TOLVAPTAN
     Dosage: UNK
     Route: 065
  3. PREGABALIN. [Concomitant]
     Active Substance: PREGABALIN
     Indication: POLYNEUROPATHY
     Dosage: 50 MG, QD
     Route: 065
     Dates: start: 20200513
  4. JINARC [Suspect]
     Active Substance: TOLVAPTAN
     Indication: CONGENITAL CYSTIC KIDNEY DISEASE
     Dosage: 90 MG, QD
     Route: 065
     Dates: start: 20170408, end: 20201109
  5. ENALAPRIL [Concomitant]
     Active Substance: ENALAPRIL
     Indication: HYPERTENSION
     Dosage: 20 MG, QD
     Route: 065
     Dates: start: 20200824
  6. MOXONIDIN [Concomitant]
     Active Substance: MOXONIDINE
     Indication: HYPERTENSION
     Dosage: 0.6 MG, QD
     Route: 065
     Dates: start: 20200727
  7. CHOLECALCIFEROL [Concomitant]
     Active Substance: CHOLECALCIFEROL
     Indication: VITAMIN D DEFICIENCY
     Dosage: 1300 IE,QD
     Route: 065
     Dates: start: 20200206
  8. LERCANIDIPINE [Concomitant]
     Active Substance: LERCANIDIPINE
     Indication: HYPERTENSION
     Dosage: 20 MG, QD
     Route: 065
     Dates: start: 20200824

REACTIONS (11)
  - Flank pain [Unknown]
  - Haemorrhage urinary tract [Unknown]
  - Costovertebral angle tenderness [Unknown]
  - Polydipsia [Unknown]
  - Cyst rupture [Recovered/Resolved]
  - Urinary tract infection [Unknown]
  - Glomerular filtration rate decreased [Unknown]
  - Blood creatinine increased [Unknown]
  - Haematuria [Unknown]
  - Haemorrhagic cyst [Unknown]
  - Renal haematoma [Unknown]

NARRATIVE: CASE EVENT DATE: 20200129
